FAERS Safety Report 14146601 (Version 1)
Quarter: 2017Q4

REPORT INFORMATION
  Report Type: Spontaneous
  Country: FR (occurrence: FR)
  Receive Date: 20171031
  Receipt Date: 20171031
  Transmission Date: 20180321
  Serious: Yes (Other)
  Sender: FDA-Public Use
  Company Number: FR-JNJFOC-20171030477

PATIENT
  Sex: Male

DRUGS (1)
  1. EVICEL [Suspect]
     Active Substance: FIBRINOGEN HUMAN\THROMBIN HUMAN
     Indication: PTERYGIUM
     Route: 061

REACTIONS (3)
  - Off label use [Unknown]
  - Product used for unknown indication [Unknown]
  - Skin graft detachment [Unknown]
